FAERS Safety Report 9343207 (Version 1)
Quarter: 2013Q2

REPORT INFORMATION
  Report Type: Spontaneous
  Country: US (occurrence: US)
  Receive Date: 20130611
  Receipt Date: 20130611
  Transmission Date: 20140414
  Serious: No
  Sender: FDA-Public Use
  Company Number: US-009507513-1306USA002088

PATIENT
  Age: 55 Year
  Sex: Female

DRUGS (2)
  1. NASONEX [Suspect]
     Dosage: 2 DF, HS
     Route: 045
     Dates: start: 20101026
  2. LORATADINE [Concomitant]

REACTIONS (1)
  - Drug ineffective [Unknown]
